FAERS Safety Report 4283498-1 (Version None)
Quarter: 2004Q1

REPORT INFORMATION
  Report Type: 
  Country: None (occurrence: None)
  Receive Date: 20040202
  Receipt Date: 20021211
  Transmission Date: 20041129
  Serious: No
  Sender: FDA-Public Use
  Company Number: US-BRISTOL-MYERS SQUIBB COMPANY-12134334

PATIENT
  Age: 78 Year
  Sex: Male
  Weight: 110 kg

DRUGS (3)
  1. ULTRAVATE [Suspect]
     Indication: DERMATITIS
     Dosage: DURATION OF THERAPY:  8 TO 10 YEARS
     Route: 061
  2. LUPRON [Concomitant]
  3. HERBAL MIXTURE [Concomitant]

REACTIONS (1)
  - DRUG INEFFECTIVE [None]
